FAERS Safety Report 8582122-7 (Version None)
Quarter: 2012Q3

REPORT INFORMATION
  Report Type: 
  Country: None (occurrence: None)
  Receive Date: 20120809
  Receipt Date: 20120807
  Transmission Date: 20120928
  Serious: Yes (Other)
  Sender: FDA-Public Use
  Company Number: US-PFIZER INC-2012192429

PATIENT
  Age: 73 Year
  Sex: Female
  Weight: 58.957 kg

DRUGS (6)
  1. CHANTIX [Suspect]
     Dosage: 0.5 MG, 2X/DAY
     Route: 048
  2. NORCO [Concomitant]
     Indication: PAIN
     Dosage: UNK
  3. NORCO [Concomitant]
  4. CHANTIX [Suspect]
     Indication: SMOKING CESSATION THERAPY
     Dosage: 0.5 MG, 1X/DAY
     Route: 048
     Dates: start: 20120701
  5. NORCO [Concomitant]
     Indication: MUSCULAR WEAKNESS
  6. CHANTIX [Suspect]
     Dosage: 0.5 MG, UNK
     Route: 048

REACTIONS (3)
  - PRODUCT ODOUR ABNORMAL [None]
  - ANIMAL BITE [None]
  - OEDEMA PERIPHERAL [None]
